FAERS Safety Report 9587196 (Version 3)
Quarter: 2014Q1

REPORT INFORMATION
  Report Type: Spontaneous
  Country: US (occurrence: US)
  Receive Date: 20131003
  Receipt Date: 20140117
  Transmission Date: 20141002
  Serious: Yes (Other)
  Sender: FDA-Public Use
  Company Number: US-GLAXOSMITHKLINE-A1042849A

PATIENT
  Age: 71 Year
  Sex: Male

DRUGS (10)
  1. ADVAIR [Suspect]
     Indication: CHRONIC OBSTRUCTIVE PULMONARY DISEASE
     Dosage: 1PUFF TWICE PER DAY
     Route: 055
     Dates: start: 2005
  2. ALBUTEROL [Concomitant]
  3. BABY ASPIRIN [Concomitant]
  4. ZITHROMAX [Concomitant]
  5. MVI [Concomitant]
  6. CORTISPORIN [Concomitant]
  7. NIACIN [Concomitant]
  8. OMEGA 3 [Concomitant]
  9. PREDNISONE [Concomitant]
  10. SPIRIVA [Concomitant]

REACTIONS (10)
  - Dyspnoea [Recovering/Resolving]
  - Product quality issue [Not Recovered/Not Resolved]
  - Pneumonia [Unknown]
  - Chronic obstructive pulmonary disease [Not Recovered/Not Resolved]
  - Headache [Unknown]
  - Eye irritation [Unknown]
  - Oxygen saturation abnormal [Unknown]
  - Dyspnoea exertional [Unknown]
  - Drug administration error [Unknown]
  - Drug ineffective [Unknown]
